FAERS Safety Report 18976101 (Version 1)
Quarter: 2021Q1

REPORT INFORMATION
  Report Type: Spontaneous
  Country: DE (occurrence: DE)
  Receive Date: 20210305
  Receipt Date: 20210305
  Transmission Date: 20210420
  Serious: Yes (Other)
  Sender: FDA-Public Use
  Company Number: DE-TEVA-2021-DE-1885866

PATIENT
  Age: 68 Year
  Sex: Female

DRUGS (1)
  1. DICLO?RATIOPHARM SCHMERZGEL [Suspect]
     Active Substance: DICLOFENAC
     Indication: MUSCLE DISCOMFORT
     Dosage: USED FOR 2 DAYS, APPLIED TO THE STOMACH REGION
     Route: 061
     Dates: start: 202102, end: 20210224

REACTIONS (2)
  - Drug hypersensitivity [Not Recovered/Not Resolved]
  - Swelling face [Not Recovered/Not Resolved]

NARRATIVE: CASE EVENT DATE: 202102
